FAERS Safety Report 5239328-4 (Version None)
Quarter: 2007Q1

REPORT INFORMATION
  Report Type: 
  Country: None (occurrence: None)
  Receive Date: 20070213
  Receipt Date: 20070213
  Transmission Date: 20070707
  Serious: Yes (Hospitalization)
  Sender: FDA-Public Use
  Company Number: None

PATIENT
  Age: 87 Year
  Sex: Male
  Weight: 93.441 kg

DRUGS (9)
  1. WARFARIN SODIUM [Suspect]
     Indication: AORTIC VALVE REPLACEMENT
     Dosage: 6 MG DAILY PO
     Route: 048
     Dates: start: 20050107, end: 20070212
  2. OMEPRAZOLE [Concomitant]
  3. SENOKOT [Concomitant]
  4. SIMIVASTATIN [Concomitant]
  5. TAMSULOSIN HCL [Concomitant]
  6. FERROUS SULFATE [Concomitant]
  7. TEMAZEPAM [Concomitant]
  8. MIDODRINE [Concomitant]
  9. GLYBURIDE [Concomitant]

REACTIONS (10)
  - ANAEMIA [None]
  - BLOOD PRESSURE DIASTOLIC DECREASED [None]
  - BUNDLE BRANCH BLOCK LEFT [None]
  - CORONARY ARTERY DISEASE [None]
  - DRUG TOXICITY [None]
  - DYSPNOEA [None]
  - INTERNATIONAL NORMALISED RATIO INCREASED [None]
  - MELAENA [None]
  - MYOCARDIAL ISCHAEMIA [None]
  - UPPER GASTROINTESTINAL HAEMORRHAGE [None]
